FAERS Safety Report 4916652-3 (Version None)
Quarter: 2006Q1

REPORT INFORMATION
  Report Type: 
  Country: None (occurrence: None)
  Receive Date: 20060220
  Receipt Date: 20060215
  Transmission Date: 20060701
  Serious: Yes (Hospitalization)
  Sender: FDA-Public Use
  Company Number: 2006CG00331

PATIENT
  Age: 46 Year
  Sex: Male
  Weight: 82 kg

DRUGS (10)
  1. DIPRIVAN [Suspect]
     Route: 042
     Dates: start: 20051120, end: 20051122
  2. OMEPRAZOLE [Suspect]
     Route: 042
     Dates: start: 20051115, end: 20051126
  3. LASILIX [Suspect]
     Route: 042
     Dates: start: 20051121, end: 20051126
  4. AUGMENTIN '125' [Suspect]
     Dosage: 6 + 1.2 GRAMS QD
     Route: 042
     Dates: start: 20051120, end: 20051124
  5. PERFALGAN [Suspect]
     Route: 042
     Dates: start: 20051118, end: 20051124
  6. LOXEN [Suspect]
     Route: 042
     Dates: start: 20051121, end: 20051129
  7. MIDAZOLAM HCL [Suspect]
     Dosage: 5-10 MG/HOUR
     Route: 042
     Dates: start: 20051115, end: 20051201
  8. MORPHINE [Suspect]
     Route: 042
     Dates: start: 20051120, end: 20051206
  9. LOVENOX [Suspect]
     Dates: start: 20051124, end: 20051208
  10. GENTAMYCIN SULFATE [Suspect]
     Dates: start: 20051120, end: 20051122

REACTIONS (6)
  - BLOOD BILIRUBIN INCREASED [None]
  - BLOOD PRESSURE SYSTOLIC INCREASED [None]
  - HEPATIC ENZYME INCREASED [None]
  - HEPATIC HAEMATOMA [None]
  - HEPATITIS A ANTIBODY POSITIVE [None]
  - PERITONEAL EFFUSION [None]
